FAERS Safety Report 18289202 (Version 2)
Quarter: 2020Q4

REPORT INFORMATION
  Report Type: Spontaneous
  Country: US (occurrence: US)
  Receive Date: 20200921
  Receipt Date: 20201204
  Transmission Date: 20210113
  Serious: No
  Sender: FDA-Public Use
  Company Number: US-PFIZER INC-2020363527

PATIENT
  Age: 42 Year
  Sex: Female

DRUGS (2)
  1. IBRANCE [Suspect]
     Active Substance: PALBOCICLIB
     Dosage: 125 MG, CYCLIC (125 MG BY MOUTH/DAYS 1-21 OF 28)
     Route: 048
     Dates: start: 20200810
  2. IBRANCE [Suspect]
     Active Substance: PALBOCICLIB
     Indication: BREAST CANCER FEMALE
     Dosage: 125 MG, CYCLIC (1 DAILY FOR 21 DAYS)
     Route: 048
     Dates: start: 20200810

REACTIONS (6)
  - Flatulence [Unknown]
  - Fatigue [Unknown]
  - Micturition urgency [Unknown]
  - Pruritus [Unknown]
  - Bone pain [Unknown]
  - Skin texture abnormal [Unknown]
